FAERS Safety Report 25774006 (Version 1)
Quarter: 2025Q3

REPORT INFORMATION
  Report Type: Spontaneous
  Country: US (occurrence: US)
  Receive Date: 20250908
  Receipt Date: 20250908
  Transmission Date: 20251021
  Serious: Yes (Other)
  Sender: NOVO NORDISK
  Company Number: US-NOVOPROD-1512786

PATIENT
  Age: 54 Year
  Sex: Female

DRUGS (1)
  1. NOVOLOG [Suspect]
     Active Substance: INSULIN ASPART
     Indication: Cystic fibrosis related diabetes
     Route: 058
     Dates: start: 2010

REACTIONS (5)
  - Cystic fibrosis [Unknown]
  - Condition aggravated [Unknown]
  - Liver transplant [Recovered/Resolved]
  - Lung transplant [Recovered/Resolved]
  - Wrong technique in product usage process [Unknown]

NARRATIVE: CASE EVENT DATE: 20171226
